FAERS Safety Report 13641738 (Version 1)
Quarter: 2017Q2

REPORT INFORMATION
  Report Type: Spontaneous
  Country: US (occurrence: US)
  Receive Date: 20170611
  Receipt Date: 20170611
  Transmission Date: 20170830
  Serious: Yes (Other)
  Sender: FDA-Public Use
  Company Number: None

PATIENT
  Age: 31 Year
  Sex: Female
  Weight: 62.2 kg

DRUGS (1)
  1. CHANTIX [Suspect]
     Active Substance: VARENICLINE TARTRATE

REACTIONS (5)
  - Impaired driving ability [None]
  - Hangover [None]
  - Reflexes abnormal [None]
  - Feeling abnormal [None]
  - Road traffic accident [None]

NARRATIVE: CASE EVENT DATE: 20170610
